FAERS Safety Report 10784379 (Version 1)
Quarter: 2015Q1

REPORT INFORMATION
  Report Type: Spontaneous
  Country: US (occurrence: None)
  Receive Date: 20150209
  Receipt Date: 20150209
  Transmission Date: 20150721
  Serious: No
  Sender: FDA-Public Use
  Company Number: None

PATIENT
  Age: 47 Year
  Sex: Female
  Weight: 73.48 kg

DRUGS (2)
  1. OMEPRAZOLE GENERIC [Suspect]
     Active Substance: OMEPRAZOLE
     Indication: HELICOBACTER INFECTION
     Route: 048
     Dates: start: 20141201, end: 20150130
  2. IRON FOR ANEMIA (FERROUS SULFATE 325 MG) [Concomitant]

REACTIONS (3)
  - Myalgia [None]
  - Arthralgia [None]
  - Treatment failure [None]

NARRATIVE: CASE EVENT DATE: 20150115
